FAERS Safety Report 23618772 (Version 1)
Quarter: 2024Q1

REPORT INFORMATION
  Report Type: Spontaneous
  Country: CN (occurrence: CN)
  Receive Date: 20240311
  Receipt Date: 20240311
  Transmission Date: 20240410
  Serious: Yes (Hospitalization)
  Sender: FDA-Public Use
  Company Number: CN-PFIZER INC-PV202400032512

PATIENT
  Age: 57 Year
  Sex: Female
  Weight: 40 kg

DRUGS (3)
  1. LINEZOLID [Suspect]
     Active Substance: LINEZOLID
     Indication: Atypical mycobacterial infection
     Dosage: 0.6 G, 1X/DAY
     Route: 048
     Dates: start: 20231201, end: 20240226
  2. LINEZOLID [Suspect]
     Active Substance: LINEZOLID
     Indication: Lung disorder
  3. LINEZOLID [Suspect]
     Active Substance: LINEZOLID
     Indication: Antibiotic prophylaxis

REACTIONS (3)
  - Hypoaesthesia [Recovering/Resolving]
  - Limb discomfort [Recovering/Resolving]
  - Off label use [Unknown]

NARRATIVE: CASE EVENT DATE: 20231201
